FAERS Safety Report 5799288-4 (Version None)
Quarter: 2008Q3

REPORT INFORMATION
  Report Type: 
  Country: None (occurrence: None)
  Receive Date: 20080701
  Receipt Date: 20080616
  Transmission Date: 20090109
  Serious: Yes (Death)
  Sender: FDA-Public Use
  Company Number: 2008AL007212

PATIENT
  Age: 59 Year
  Sex: Female

DRUGS (1)
  1. DIGOXIN [Suspect]
     Dosage: 0.25MG BID PO
     Route: 048
     Dates: start: 20070310, end: 20080221

REACTIONS (1)
  - THERAPEUTIC AGENT TOXICITY [None]
